FAERS Safety Report 4893217-3 (Version None)
Quarter: 2006Q1

REPORT INFORMATION
  Report Type: 
  Country: None (occurrence: None)
  Receive Date: 20060127
  Receipt Date: 20060116
  Transmission Date: 20060701
  Serious: Yes (Life-Threatening)
  Sender: FDA-Public Use
  Company Number: US-BOEHRINGER INGELHEIM PHARMACEUTICALS, INC.-2006-DE-00222GD

PATIENT
  Age: 38 Year
  Sex: Female

DRUGS (5)
  1. VIRAMUNE [Suspect]
     Indication: HIV TEST POSITIVE
  2. ZIDOVUDINE [Suspect]
     Indication: HIV TEST POSITIVE
  3. LAMIVUDINE [Suspect]
     Indication: HIV TEST POSITIVE
  4. COMBIVIR [Suspect]
     Indication: HIV TEST POSITIVE
     Dosage: 300 MG LAMIVUDINE, 600 MG AZT
  5. MEDICINALPRODUCT NOT SPECIFIED BY SENDER [Concomitant]

REACTIONS (5)
  - ANAEMIA MACROCYTIC [None]
  - CAESAREAN SECTION [None]
  - DRUG EXPOSURE DURING PREGNANCY [None]
  - FATIGUE [None]
  - WEIGHT GAIN POOR [None]
